FAERS Safety Report 8449877-3 (Version None)
Quarter: 2012Q2

REPORT INFORMATION
  Report Type: 
  Country: None (occurrence: None)
  Receive Date: 20120620
  Receipt Date: 20120615
  Transmission Date: 20120825
  Serious: Yes (Death)
  Sender: FDA-Public Use
  Company Number: BR-US-EMD SERONO, INC.-7139461

PATIENT
  Sex: Male

DRUGS (2)
  1. PROPRANOLOL [Concomitant]
     Indication: HYPERTENSION
  2. REBIF [Suspect]
     Indication: RELAPSING-REMITTING MULTIPLE SCLEROSIS
     Dates: start: 20090601, end: 20111001

REACTIONS (1)
  - MYOCARDIAL INFARCTION [None]
